FAERS Safety Report 8143958-X (Version None)
Quarter: 2012Q1

REPORT INFORMATION
  Report Type: 
  Country: None (occurrence: None)
  Receive Date: 20120217
  Receipt Date: 20120217
  Transmission Date: 20120608
  Serious: Yes (Hospitalization, Other)
  Sender: FDA-Public Use
  Company Number: None

PATIENT
  Age: 32 Year
  Sex: Female
  Weight: 95.254 kg

DRUGS (6)
  1. EXCEDRIN TENSION HEADACHE CAPLETS [Suspect]
     Indication: HEADACHE
     Dosage: 2 PILLS
     Route: 048
     Dates: start: 20120101, end: 20120203
  2. MULTI-VITAMINS [Concomitant]
     Route: 048
  3. WELLBUTRIN [Concomitant]
  4. FLONASE [Concomitant]
  5. CLARITIN-D [Concomitant]
  6. IBUPROFEN (ADVIL) [Concomitant]

REACTIONS (1)
  - CONVULSION [None]
